FAERS Safety Report 6621622-3 (Version None)
Quarter: 2010Q1

REPORT INFORMATION
  Report Type: 
  Country: None (occurrence: None)
  Receive Date: 20100223
  Receipt Date: 20091105
  Transmission Date: 20100710
  Serious: No
  Sender: FDA-Public Use
  Company Number: 8054260

PATIENT
  Sex: Female

DRUGS (1)
  1. CERTOLIZUMAB PEGOL [Suspect]
     Dosage: (400 MG MONTHLY SUBCUTANEOUS)
     Route: 058

REACTIONS (2)
  - BACK PAIN [None]
  - FREQUENT BOWEL MOVEMENTS [None]
